FAERS Safety Report 17179210 (Version 3)
Quarter: 2020Q1

REPORT INFORMATION
  Report Type: Report from Study
  Country: US (occurrence: US)
  Receive Date: 20191219
  Receipt Date: 20200117
  Transmission Date: 20200409
  Serious: Yes (Hospitalization, Other)
  Sender: FDA-Public Use
  Company Number: US-ROCHE-2410628

PATIENT
  Age: 63 Year
  Sex: Female
  Weight: 82 kg

DRUGS (4)
  1. PEMETREXED. [Suspect]
     Active Substance: PEMETREXED
     Indication: PLEURAL MESOTHELIOMA MALIGNANT
     Route: 065
     Dates: start: 20181218
  2. ATEZOLIZUMAB. [Suspect]
     Active Substance: ATEZOLIZUMAB
     Indication: PLEURAL MESOTHELIOMA MALIGNANT
     Route: 042
  3. ATEZOLIZUMAB. [Suspect]
     Active Substance: ATEZOLIZUMAB
     Indication: MESOTHELIOMA
  4. CISPLATIN. [Suspect]
     Active Substance: CISPLATIN
     Indication: PLEURAL MESOTHELIOMA MALIGNANT
     Route: 065
     Dates: start: 20181218

REACTIONS (13)
  - Pericardial effusion [Unknown]
  - Confusional state [Unknown]
  - Sinus tachycardia [Unknown]
  - Abdominal pain [Unknown]
  - Vomiting [Unknown]
  - Abdominal pain upper [Unknown]
  - Hypotension [Unknown]
  - Nausea [Unknown]
  - Pyrexia [Unknown]
  - Encephalopathy [Unknown]
  - Sepsis [Unknown]
  - Pleural effusion [Unknown]
  - Infusion related reaction [Recovered/Resolved with Sequelae]

NARRATIVE: CASE EVENT DATE: 20190124
